FAERS Safety Report 25671892 (Version 1)
Quarter: 2025Q3

REPORT INFORMATION
  Report Type: Spontaneous
  Country: US (occurrence: US)
  Receive Date: 20250812
  Receipt Date: 20250812
  Transmission Date: 20251021
  Serious: Yes (Other)
  Sender: BAUSCH AND LOMB
  Company Number: US-BAUSCH-BH-2025-015951

PATIENT
  Age: 62 Year
  Sex: Female

DRUGS (1)
  1. WELLBUTRIN XL [Suspect]
     Active Substance: BUPROPION HYDROCHLORIDE
     Indication: Major depression
     Route: 065

REACTIONS (5)
  - Adverse event [Unknown]
  - Feeling abnormal [Unknown]
  - Counterfeit product administered [Unknown]
  - Product counterfeit [Unknown]
  - Product colour issue [Unknown]
